FAERS Safety Report 14849155 (Version 2)
Quarter: 2018Q4

REPORT INFORMATION
  Report Type: Report from Study
  Country: US (occurrence: US)
  Receive Date: 20180504
  Receipt Date: 20181206
  Transmission Date: 20190204
  Serious: Yes (Hospitalization, Other)
  Sender: FDA-Public Use
  Company Number: PHEH2018US016470

PATIENT
  Age: 43 Year
  Sex: Female

DRUGS (1)
  1. GILENYA [Suspect]
     Active Substance: FINGOLIMOD HYDROCHLORIDE
     Indication: MULTIPLE SCLEROSIS
     Dosage: 0.5 MG, QD
     Route: 048
     Dates: start: 20180411

REACTIONS (8)
  - Dizziness [Recovered/Resolved]
  - Vomiting [Not Recovered/Not Resolved]
  - Syncope [Recovered/Resolved]
  - Nausea [Not Recovered/Not Resolved]
  - Pain [Unknown]
  - Hypersensitivity [Unknown]
  - Blindness [Not Recovered/Not Resolved]
  - Abdominal pain [Recovered/Resolved]

NARRATIVE: CASE EVENT DATE: 20180411
